FAERS Safety Report 23169668 (Version 1)
Quarter: 2023Q4

REPORT INFORMATION
  Report Type: Other
  Country: IT (occurrence: IT)
  Receive Date: 20231110
  Receipt Date: 20231110
  Transmission Date: 20240110
  Serious: Yes (Other)
  Sender: FDA-Public Use
  Company Number: IT-MACLEODS PHARMACEUTICALS US LTD-MAC2023044216

PATIENT

DRUGS (3)
  1. IRBESARTAN [Suspect]
     Active Substance: IRBESARTAN
     Indication: Hypertension
     Dosage: UNK,STOP DATE 18 SEP 2023,
     Route: 048
  2. CANRENOATE POTASSIUM [Suspect]
     Active Substance: CANRENOATE POTASSIUM
     Indication: Hypertension
     Dosage: UNK, STOP DATE 18 SEP 2023,
     Route: 048
  3. HYDROCHLOROTHIAZIDE [Concomitant]
     Active Substance: HYDROCHLOROTHIAZIDE
     Indication: Hypertension
     Dosage: UNK,STOP DATE 18 SEP 2023,
     Route: 048

REACTIONS (3)
  - Bradycardia [Recovered/Resolved]
  - Acute kidney injury [Unknown]
  - Hyperkalaemia [Recovered/Resolved]

NARRATIVE: CASE EVENT DATE: 20230918
